FAERS Safety Report 5287611-9 (Version None)
Quarter: 2007Q1

REPORT INFORMATION
  Report Type: 
  Country: None (occurrence: None)
  Receive Date: 20070124
  Receipt Date: 20060216
  Transmission Date: 20070707
  Serious: Yes (Other)
  Sender: FDA-Public Use
  Company Number: WAES 0602USA04505

PATIENT
  Sex: Male
  Weight: 74.8435 kg

DRUGS (3)
  1. INVANZ [Suspect]
     Indication: CELLULITIS
     Dosage: 1 GM/DAILY/IV
     Route: 042
     Dates: start: 20060207, end: 20060208
  2. FLAGYL [Concomitant]
  3. METHADONE HYDROCHLORIDE [Concomitant]

REACTIONS (2)
  - PRURITUS [None]
  - RASH [None]
